FAERS Safety Report 23553895 (Version 7)
Quarter: 2025Q3

REPORT INFORMATION
  Report Type: Spontaneous
  Country: EU (occurrence: EU)
  Receive Date: 20240222
  Receipt Date: 20250702
  Transmission Date: 20251020
  Serious: Yes (Hospitalization, Other)
  Sender: PFIZER
  Company Number: EU-Accord-403318

PATIENT
  Age: 64 Year
  Sex: Female
  Weight: 66 kg

DRUGS (11)
  1. CARBOPLATIN [Suspect]
     Active Substance: CARBOPLATIN
     Indication: Small cell lung cancer limited stage
     Dosage: 600 MG, EVERY 3 WEEKS
     Route: 041
     Dates: start: 20231218, end: 20231218
  2. CARBOPLATIN [Suspect]
     Active Substance: CARBOPLATIN
     Dosage: 600 MG, EVERY 3 WEEKS
     Route: 041
     Dates: start: 20240115, end: 20240115
  3. ETOPOSIDE [Suspect]
     Active Substance: ETOPOSIDE
     Indication: Small cell lung cancer limited stage
     Dosage: 164 MG, EVERY 3 WEEKS
     Route: 041
     Dates: start: 20231218, end: 20231218
  4. ETOPOSIDE [Suspect]
     Active Substance: ETOPOSIDE
     Dosage: 164 MG, EVERY 3 WEEKS
     Route: 041
     Dates: start: 20240115, end: 20240115
  5. ATORVASTATIN [Concomitant]
     Active Substance: ATORVASTATIN
     Indication: Dyslipidaemia
     Dosage: 60 MG, 1X/DAY (FREQUENCY: 24 HOURS)
     Route: 048
     Dates: start: 201501
  6. ATROVENT [Concomitant]
     Active Substance: IPRATROPIUM BROMIDE
     Indication: Bronchospasm
     Dosage: 20 UG, 3X/DAY (FREQUNECY: 8 HOURS; NEBULIZER)
     Dates: start: 20231025
  7. BISOPROLOL [Concomitant]
     Active Substance: BISOPROLOL
     Indication: Hypertension
     Dosage: 5 MG, 1X/DAY (FREQUENCY: 24 HOURS)
     Route: 048
     Dates: start: 201501
  8. FERROUS SULFATE [Concomitant]
     Active Substance: FERROUS SULFATE
     Indication: Anaemia
     Dosage: 256 MG, 1X/DAY (FREQUENCY: 24 HOURS)
     Route: 048
     Dates: start: 20231218
  9. OMEPRAZOLE [Concomitant]
     Active Substance: OMEPRAZOLE
     Indication: Dyspepsia
     Dosage: 20 MG, 1X/DAY (FREQUENCY: 24 HOURS)
     Route: 048
     Dates: start: 20230323
  10. ACETAMINOPHEN [Concomitant]
     Active Substance: ACETAMINOPHEN
     Indication: Pain
     Route: 048
     Dates: start: 20221124
  11. RAMIPRIL [Concomitant]
     Active Substance: RAMIPRIL
     Indication: Hypertension
     Dosage: 2.5 MG, 1X/DAY (FREQUENCY: 24 HOURS)
     Route: 048
     Dates: start: 20220118

REACTIONS (2)
  - Abdominal pain [Recovered/Resolved]
  - Anaemia [Recovered/Resolved]

NARRATIVE: CASE EVENT DATE: 20240108
